FAERS Safety Report 6921045-3 (Version None)
Quarter: 2010Q3

REPORT INFORMATION
  Report Type: 
  Country: None (occurrence: None)
  Receive Date: 20100812
  Receipt Date: 20100805
  Transmission Date: 20110219
  Serious: Yes (Hospitalization)
  Sender: FDA-Public Use
  Company Number: BE-JNJCH-9511425

PATIENT
  Sex: Male
  Weight: 9.5 kg

DRUGS (2)
  1. CETIRIZINE HYDROCHLORIDE [Suspect]
     Indication: ATOPY
     Dosage: DAILY DOSE:5MG-FREQ:DAILY
     Route: 048
  2. FLUOCORTIN [Concomitant]
     Route: 061

REACTIONS (2)
  - DEHYDRATION [None]
  - GASTROENTERITIS [None]
